FAERS Safety Report 12625665 (Version 2)
Quarter: 2016Q3

REPORT INFORMATION
  Report Type: Spontaneous
  Country: US (occurrence: US)
  Receive Date: 20160805
  Receipt Date: 20160829
  Transmission Date: 20161109
  Serious: No
  Sender: FDA-Public Use
  Company Number: US-GLAXOSMITHKLINE-US2016105531

PATIENT
  Age: 68 Year
  Sex: Female

DRUGS (17)
  1. IRON [Concomitant]
     Active Substance: IRON
  2. LEVOTHYROXINE. [Concomitant]
     Active Substance: LEVOTHYROXINE
  3. VOLTAREN [Concomitant]
     Active Substance: DICLOFENAC SODIUM
  4. ALOE VERA [Concomitant]
     Active Substance: ALOE VERA LEAF
  5. LORATADINE. [Concomitant]
     Active Substance: LORATADINE
  6. FUROSEMIDE. [Concomitant]
     Active Substance: FUROSEMIDE
  7. TRAMADOL. [Concomitant]
     Active Substance: TRAMADOL
  8. BREO ELLIPTA [Suspect]
     Active Substance: FLUTICASONE FUROATE\VILANTEROL TRIFENATATE
     Indication: DYSPNOEA
     Dosage: UNK
  9. AMITRIPTYLINE [Concomitant]
     Active Substance: AMITRIPTYLINE
  10. FLUTICASONE NASAL SPRAY [Concomitant]
     Active Substance: FLUTICASONE\FLUTICASONE PROPIONATE
  11. SERTRALINE [Concomitant]
     Active Substance: SERTRALINE HYDROCHLORIDE
  12. CHROMIUM [Concomitant]
     Active Substance: CHROMIC CHLORIDE\CHROMIUM
  13. GABAPENTIN. [Concomitant]
     Active Substance: GABAPENTIN
  14. VITAMIN C [Concomitant]
     Active Substance: ASCORBIC ACID
  15. AZITHROMYCIN ANHYDROUS. [Concomitant]
     Active Substance: AZITHROMYCIN ANHYDROUS
  16. MINOCYCLINE [Concomitant]
     Active Substance: MINOCYCLINE\MINOCYCLINE HYDROCHLORIDE
  17. BREO ELLIPTA [Suspect]
     Active Substance: FLUTICASONE FUROATE\VILANTEROL TRIFENATATE
     Indication: ASTHMA
     Dosage: 1 PUFF(S), QD
     Route: 055
     Dates: start: 201606

REACTIONS (1)
  - Biopsy lung [Not Recovered/Not Resolved]

NARRATIVE: CASE EVENT DATE: 20160719
